FAERS Safety Report 7969343-9 (Version None)
Quarter: 2011Q4

REPORT INFORMATION
  Report Type: 
  Country: None (occurrence: None)
  Receive Date: 20111209
  Receipt Date: 20111130
  Transmission Date: 20120403
  Serious: Yes (Hospitalization, Other)
  Sender: FDA-Public Use
  Company Number: US-ASTRAZENECA-2011SE73200

PATIENT
  Age: 59 Year
  Sex: Male

DRUGS (2)
  1. PRADAXA [Concomitant]
  2. CRESTOR [Suspect]
     Route: 048

REACTIONS (3)
  - WHEELCHAIR USER [None]
  - RENAL IMPAIRMENT [None]
  - SINGLE FUNCTIONAL KIDNEY [None]
